FAERS Safety Report 18695479 (Version 1)
Quarter: 2021Q1

REPORT INFORMATION
  Report Type: Spontaneous
  Country: US (occurrence: US)
  Receive Date: 20210104
  Receipt Date: 20210104
  Transmission Date: 20210419
  Serious: Yes (Hospitalization, Other)
  Sender: FDA-Public Use
  Company Number: US-SAMSUNG BIOEPIS-SB-2020-38486

PATIENT
  Age: 77 Year
  Sex: Male

DRUGS (1)
  1. INFLIXIMAB [Suspect]
     Active Substance: INFLIXIMAB
     Indication: COLITIS ULCERATIVE
     Dosage: UNKNOWN
     Route: 065

REACTIONS (12)
  - Facial bones fracture [Unknown]
  - Exposure to communicable disease [Unknown]
  - Fall [Unknown]
  - Meningitis bacterial [Recovered/Resolved]
  - Pneumonia aspiration [Unknown]
  - Hydrocephalus [Not Recovered/Not Resolved]
  - Immunosuppression [Unknown]
  - Cerebrospinal fluid leakage [Recovered/Resolved]
  - Hypertensive emergency [Unknown]
  - Subarachnoid haemorrhage [Unknown]
  - Hypertension [Unknown]
  - Subdural haematoma [Unknown]
